FAERS Safety Report 6601550-X (Version None)
Quarter: 2010Q1

REPORT INFORMATION
  Report Type: 
  Country: None (occurrence: None)
  Receive Date: 20100225
  Receipt Date: 20091123
  Transmission Date: 20100710
  Serious: No
  Sender: FDA-Public Use
  Company Number: US-KINGPHARMUSA00001-K200901478

PATIENT
  Sex: Female
  Weight: 49.887 kg

DRUGS (8)
  1. FLECTOR [Suspect]
     Indication: BONE PAIN
     Dosage: 2 PATCH, UNK
     Route: 061
     Dates: start: 20080101, end: 20091119
  2. METHADONE HCL [Concomitant]
     Indication: BONE PAIN
     Dosage: UNK
  3. PAMELOR [Concomitant]
     Indication: NEURALGIA
     Dosage: UNK
  4. ZANAFLEX [Concomitant]
     Indication: MUSCLE RELAXANT THERAPY
     Dosage: UNK
  5. TOPAMAX [Concomitant]
     Indication: HEADACHE
     Dosage: UNK
  6. LOTREL [Concomitant]
     Indication: HYPERTENSION
     Dosage: UNK
  7. LIPITOR [Concomitant]
     Indication: BLOOD CHOLESTEROL INCREASED
     Dosage: UNK
  8. EXCEDRIN (MIGRAINE) [Concomitant]
     Indication: HEADACHE

REACTIONS (2)
  - APPLICATION SITE RASH [None]
  - APPLICATION SITE VESICLES [None]
